FAERS Safety Report 11507894 (Version 1)
Quarter: 2015Q3

REPORT INFORMATION
  Report Type: Spontaneous
  Country: US (occurrence: None)
  Receive Date: 20150914
  Receipt Date: 20150914
  Transmission Date: 20151125
  Serious: Yes (Hospitalization, Disabling)
  Sender: FDA-Public Use
  Company Number: None

PATIENT
  Age: 54 Year
  Sex: Female
  Weight: 37.65 kg

DRUGS (9)
  1. LATUDA [Suspect]
     Active Substance: LURASIDONE HYDROCHLORIDE
     Indication: BIPOLAR DISORDER
     Dosage: 1PILL DAILY  ONCE DAY BY MOUTH
     Route: 048
     Dates: start: 20141223, end: 20150123
  2. DOXEPIN [Concomitant]
     Active Substance: DOXEPIN
  3. XANAX [Concomitant]
     Active Substance: ALPRAZOLAM
  4. RISPERIDONE. [Concomitant]
     Active Substance: RISPERIDONE
  5. WELLBUTRIN [Concomitant]
     Active Substance: BUPROPION HYDROCHLORIDE
  6. METOPROLOL [Concomitant]
     Active Substance: METOPROLOL
  7. DEMECLOCYCLINE [Concomitant]
     Active Substance: DEMECLOCYCLINE
  8. PROPRANOLOL [Concomitant]
     Active Substance: PROPRANOLOL\PROPRANOLOL HYDROCHLORIDE
  9. DEXILANT [Concomitant]
     Active Substance: DEXLANSOPRAZOLE

REACTIONS (3)
  - Heart rate abnormal [None]
  - Blood pressure inadequately controlled [None]
  - Diarrhoea [None]

NARRATIVE: CASE EVENT DATE: 20141223
